FAERS Safety Report 5468283-7 (Version None)
Quarter: 2007Q3

REPORT INFORMATION
  Report Type: 
  Country: None (occurrence: None)
  Receive Date: 20070926
  Receipt Date: 20070912
  Transmission Date: 20080115
  Serious: No
  Sender: FDA-Public Use
  Company Number: US-ELI_LILLY_AND_COMPANY-US200709003040

PATIENT
  Sex: Male

DRUGS (2)
  1. CYMBALTA [Suspect]
     Dosage: UNK MG, UNK
  2. MOBIC [Concomitant]

REACTIONS (2)
  - HYPOTENSION [None]
  - URINE COLOUR ABNORMAL [None]
